FAERS Safety Report 10211179 (Version 1)
Quarter: 2014Q2

REPORT INFORMATION
  Report Type: Spontaneous
  Country: HU (occurrence: None)
  Receive Date: 20140528
  Receipt Date: 20140528
  Transmission Date: 20141212
  Serious: Yes (Hospitalization)
  Sender: FDA-Public Use
  Company Number: NSR_01553_2014

PATIENT
  Age: 87 Year
  Sex: Female

DRUGS (2)
  1. HYDROCHLOROTHIAZIDE [Suspect]
     Indication: PRODUCT USED FOR UNKNOWN INDICATION
     Dosage: (DF)
  2. ALLOPURINOL [Suspect]
     Indication: HYPERURICAEMIA

REACTIONS (10)
  - Drug reaction with eosinophilia and systemic symptoms [None]
  - Malaise [None]
  - Skin disorder [None]
  - Dehydration [None]
  - Renal impairment [None]
  - Hepatic function abnormal [None]
  - Blood alkaline phosphatase increased [None]
  - Leukocytosis [None]
  - Eosinophilia [None]
  - Lymphocyte morphology abnormal [None]
